FAERS Safety Report 9664090 (Version 1)
Quarter: 2013Q4

REPORT INFORMATION
  Report Type: Spontaneous
  Country: US (occurrence: None)
  Receive Date: 20131030
  Receipt Date: 20131030
  Transmission Date: 20140711
  Serious: No
  Sender: FDA-Public Use
  Company Number: None

PATIENT
  Sex: 0

DRUGS (1)
  1. ARIMIDEX [Suspect]
     Route: 048
     Dates: start: 20130701, end: 20131001

REACTIONS (3)
  - Migraine [None]
  - Constipation [None]
  - Nausea [None]
